FAERS Safety Report 9806968 (Version 1)
Quarter: 2014Q1

REPORT INFORMATION
  Report Type: Spontaneous
  Country: CO (occurrence: CO)
  Receive Date: 20140109
  Receipt Date: 20140109
  Transmission Date: 20141002
  Serious: Yes (Other)
  Sender: FDA-Public Use
  Company Number: CO-PFIZER INC-2014006163

PATIENT
  Age: 74 Year
  Sex: Male

DRUGS (1)
  1. CARDURAN [Suspect]
     Dosage: 4 MG, UNK
     Route: 048
     Dates: end: 201310

REACTIONS (1)
  - Prostatic disorder [Unknown]
